FAERS Safety Report 8962333 (Version 1)
Quarter: 2012Q4

REPORT INFORMATION
  Report Type: Spontaneous
  Country: US (occurrence: None)
  Receive Date: 20121211
  Receipt Date: 20121211
  Transmission Date: 20130627
  Serious: Yes (Other)
  Sender: FDA-Public Use
  Company Number: None

PATIENT
  Age: 70 Year
  Sex: Female
  Weight: 81.65 kg

DRUGS (1)
  1. SMZ/TMP DS 800-160 TAB (GENERIC) [Suspect]
     Indication: SINUS INFECTION
     Route: 048
     Dates: start: 20121113, end: 20121122

REACTIONS (10)
  - Diarrhoea [None]
  - Nausea [None]
  - Chills [None]
  - Musculoskeletal stiffness [None]
  - Headache [None]
  - Dyspnoea [None]
  - Blood glucose decreased [None]
  - Fatigue [None]
  - Asthenia [None]
  - Dysgeusia [None]
